FAERS Safety Report 18534149 (Version 2)
Quarter: 2020Q4

REPORT INFORMATION
  Report Type: Spontaneous
  Country: US (occurrence: US)
  Receive Date: 20201123
  Receipt Date: 20201127
  Transmission Date: 20210114
  Serious: Yes (Hospitalization)
  Sender: FDA-Public Use
  Company Number: US-PFIZER INC-2019012666

PATIENT
  Age: 6 Year
  Sex: Female
  Weight: 18 kg

DRUGS (2)
  1. GENOTROPIN [Suspect]
     Active Substance: SOMATROPIN
     Indication: BARTTER^S SYNDROME
     Dosage: 0.7 MG, DAILY
     Dates: start: 20181021
  2. GENOTROPIN [Suspect]
     Active Substance: SOMATROPIN
     Indication: GROWTH DISORDER
     Dosage: 0.3 MG, 1X/DAY
     Dates: start: 2019

REACTIONS (8)
  - Vomiting [Recovered/Resolved]
  - Headache [Unknown]
  - Disease recurrence [Recovered/Resolved]
  - Off label use [Unknown]
  - Blood sodium increased [Unknown]
  - Dehydration [Unknown]
  - Blood potassium decreased [Unknown]
  - Disease recurrence [Unknown]

NARRATIVE: CASE EVENT DATE: 2020
